FAERS Safety Report 6469926-1 (Version None)
Quarter: 2009Q4

REPORT INFORMATION
  Report Type: 
  Country: None (occurrence: None)
  Receive Date: 20091203
  Receipt Date: 20071023
  Transmission Date: 20100525
  Serious: Yes (Hospitalization)
  Sender: FDA-Public Use
  Company Number: ZA-ELI_LILLY_AND_COMPANY-ZA200710002177

PATIENT
  Age: 60 Year
  Sex: Male

DRUGS (7)
  1. CYMBALTA [Suspect]
     Indication: MAJOR DEPRESSION
     Dosage: 60 MG, DAILY (1/D)
     Route: 048
     Dates: start: 20061122, end: 20061125
  2. WARFARIN SODIUM [Concomitant]
     Indication: ATRIAL FIBRILLATION
  3. AMIODARONE HCL [Concomitant]
     Indication: HYPERTENSION
  4. ALLOPURINOL [Concomitant]
     Indication: GOUT
  5. ATORVASTATIN CALCIUM [Concomitant]
     Indication: HYPERCHOLESTEROLAEMIA
  6. ESOMEPRAZOLE [Concomitant]
     Indication: GASTRITIS
  7. CLOBAZAM [Concomitant]
     Indication: ANXIETY
     Dates: end: 20061125

REACTIONS (1)
  - VESTIBULAR ATAXIA [None]
